FAERS Safety Report 8962068 (Version 1)
Quarter: 2012Q4

REPORT INFORMATION
  Report Type: 
  Country: US (occurrence: US)
  Receive Date: 20121212
  Receipt Date: 20121212
  Transmission Date: 20130627
  Serious: Yes (Other)
  Sender: FDA-Public Use
  Company Number: US-PFIZER INC-2012311930

PATIENT
  Age: 27 Year
  Sex: Male
  Weight: 104.31 kg

DRUGS (1)
  1. EFFEXOR [Suspect]
     Indication: DEPRESSION
     Dosage: 37.5 mg, 1x/day
     Route: 048
     Dates: end: 2012

REACTIONS (2)
  - Depression [Unknown]
  - Drug ineffective [Unknown]
